FAERS Safety Report 18285335 (Version 6)
Quarter: 2021Q1

REPORT INFORMATION
  Report Type: Spontaneous
  Country: FR (occurrence: FR)
  Receive Date: 20200919
  Receipt Date: 20210324
  Transmission Date: 20210419
  Serious: Yes (Hospitalization, Other)
  Sender: FDA-Public Use
  Company Number: FR-AUROBINDO-AUR-APL-2020-048123

PATIENT
  Age: 79 Year
  Sex: Female
  Weight: 72 kg

DRUGS (15)
  1. CIPROFLOXACIN. [Suspect]
     Active Substance: CIPROFLOXACIN
     Indication: SPONDYLITIS
     Dosage: 1500 MILLIGRAM, ONCE A DAY
     Route: 048
     Dates: start: 20200710, end: 20200814
  2. FENTANYL. [Suspect]
     Active Substance: FENTANYL
     Indication: PAIN
     Dosage: UNK, EVERY HOUR
     Route: 048
     Dates: start: 20200710
  3. HYDROXYZINE [Suspect]
     Active Substance: HYDROXYZINE HYDROCHLORIDE
     Indication: PRODUCT USED FOR UNKNOWN INDICATION
     Dosage: UNK,INCONNUE
     Route: 065
     Dates: start: 20200721, end: 20200814
  4. ORAMORPH [Suspect]
     Active Substance: MORPHINE SULFATE
     Dosage: 2.5 MILLIGRAM, FOUR TIMES/DAY (2.5 MILLIGRAM,SI BESOIN (IF NECESSARY))
     Route: 048
     Dates: start: 20200704, end: 20200814
  5. CARVEDILOL. [Concomitant]
     Active Substance: CARVEDILOL
     Indication: PRODUCT USED FOR UNKNOWN INDICATION
     Dosage: 6.25 MILLIGRAM, ONCE A DAY
     Route: 065
     Dates: start: 20200703
  6. CEFTRIAXONE POWDER AND SOLVENT FOR SOLUTION FOR INJECTION [Suspect]
     Active Substance: CEFTRIAXONE
     Indication: SPONDYLITIS
     Dosage: 2 GRAM, ONCE A DAY
     Route: 042
     Dates: start: 20200715, end: 20200814
  7. FENTANYL. [Suspect]
     Active Substance: FENTANYL
     Indication: PAIN
     Dosage: 12 MICROGRAM, EVERY HOUR
     Route: 062
     Dates: start: 20200710, end: 20200814
  8. ACENOCOUMAROL [Suspect]
     Active Substance: ACENOCOUMAROL
     Indication: ATRIAL FIBRILLATION
     Dosage: 3 MILLIGRAM, ONCE A DAY
     Route: 048
     Dates: start: 20200630, end: 20200814
  9. KARDEGIC [Suspect]
     Active Substance: ASPIRIN DL-LYSINE
     Indication: ATRIAL FIBRILLATION
     Dosage: 75 MILLIGRAM, ONCE A DAY
     Route: 048
     Dates: start: 20200722, end: 20200814
  10. KREDEX [Suspect]
     Active Substance: CARVEDILOL
     Indication: PRODUCT USED FOR UNKNOWN INDICATION
     Dosage: 3.13 MILLIGRAM, TWO TIMES A DAY
     Route: 065
     Dates: start: 20200703
  11. ORAMORPH [Suspect]
     Active Substance: MORPHINE SULFATE
     Indication: PAIN
     Dosage: UNK UNK, FOUR TIMES/DAY
     Route: 048
     Dates: start: 20200704, end: 20200802
  12. FUROSEMIDE. [Concomitant]
     Active Substance: FUROSEMIDE
     Indication: PRODUCT USED FOR UNKNOWN INDICATION
     Dosage: UNK
     Route: 065
     Dates: start: 20200701
  13. INSULINE GLARGINE [Concomitant]
     Active Substance: INSULIN GLARGINE
     Indication: PRODUCT USED FOR UNKNOWN INDICATION
     Dosage: UNK
     Route: 065
     Dates: start: 20200701
  14. AMPHOTERICINE B [Suspect]
     Active Substance: AMPHOTERICIN B
     Indication: ORAL CANDIDIASIS
     Dosage: UNK
     Route: 048
     Dates: start: 20200728, end: 20200814
  15. COUMADINE [Suspect]
     Active Substance: WARFARIN SODIUM
     Indication: ATRIAL FIBRILLATION
     Dosage: 3 MILLIGRAM, ONCE A DAY
     Route: 048
     Dates: start: 20200630, end: 20200814

REACTIONS (12)
  - Splenomegaly [Unknown]
  - Glossitis [Unknown]
  - Intra-abdominal fluid collection [Unknown]
  - Drug reaction with eosinophilia and systemic symptoms [Recovered/Resolved]
  - Breath sounds [Unknown]
  - Hepatocellular injury [Recovering/Resolving]
  - Rash maculo-papular [Not Recovered/Not Resolved]
  - Eosinophilia [Recovered/Resolved]
  - Cheilitis [Unknown]
  - Oedema peripheral [Recovered/Resolved]
  - Hypercreatininaemia [Recovered/Resolved]
  - Hepatic cirrhosis [Unknown]

NARRATIVE: CASE EVENT DATE: 202008
